FAERS Safety Report 21576008 (Version 1)
Quarter: 2022Q4

REPORT INFORMATION
  Report Type: Report from Study
  Country: CA (occurrence: CA)
  Receive Date: 20221110
  Receipt Date: 20221110
  Transmission Date: 20230113
  Serious: Yes (Other)
  Sender: FDA-Public Use
  Company Number: CA-009507513-1903CAN013182

PATIENT
  Age: 59 Year
  Sex: Female

DRUGS (18)
  1. ZENHALE [Suspect]
     Active Substance: FORMOTEROL FUMARATE\MOMETASONE FUROATE
     Indication: Product used for unknown indication
     Dosage: 2 DOSAGE FORM, BID; FORMULATION: AEROSOL, METERED DOSE
  2. ZENHALE [Suspect]
     Active Substance: FORMOTEROL FUMARATE\MOMETASONE FUROATE
     Dosage: 2 DOSAGE FORM, 1 EVERY 1 DAYS; FORMULATION: AEROSOL, METERED DOSE
  3. SINGULAIR [Suspect]
     Active Substance: MONTELUKAST SODIUM
     Indication: Product used for unknown indication
     Dosage: 10 MILLIGRAM, 1 EVERY 1 DAYS
     Route: 065
  4. ALVESCO [Suspect]
     Active Substance: CICLESONIDE
     Indication: Product used for unknown indication
     Dosage: 2 DOSAGE FORM, UNK
  5. FLUTICASONE PROPIONATE\SALMETEROL XINAFOATE [Suspect]
     Active Substance: FLUTICASONE PROPIONATE\SALMETEROL XINAFOATE
     Indication: Product used for unknown indication
  6. NUCALA [Suspect]
     Active Substance: MEPOLIZUMAB
     Indication: Asthma
     Dosage: 100 MILLIGRAM, UNK
     Route: 042
  7. NUCALA [Suspect]
     Active Substance: MEPOLIZUMAB
     Indication: Product used for unknown indication
     Dosage: 100 MILLIGRAM, UNK
     Route: 042
  8. NUCALA [Suspect]
     Active Substance: MEPOLIZUMAB
     Dosage: 100 MILLIGRAM, UNK
     Route: 042
  9. NUCALA [Suspect]
     Active Substance: MEPOLIZUMAB
     Dosage: 100 MILLIGRAM, UNK
     Route: 042
  10. PREDNISONE [Suspect]
     Active Substance: PREDNISONE
     Indication: Product used for unknown indication
     Route: 065
  11. VENTOLIN [Suspect]
     Active Substance: ALBUTEROL SULFATE
     Indication: Asthma
     Route: 065
  12. XOLAIR [Suspect]
     Active Substance: OMALIZUMAB
     Indication: Product used for unknown indication
     Dosage: FORMULATION: POWDER FOR SOLUTION SUBCUTANEOUS
     Route: 065
  13. XOLAIR [Suspect]
     Active Substance: OMALIZUMAB
     Indication: Product used for unknown indication
     Dosage: DOSAGE FORM UNSPECIFIED
     Route: 065
  14. REMERON [Concomitant]
     Active Substance: MIRTAZAPINE
     Indication: Product used for unknown indication
     Dosage: 45 MILLIGRAM, UNK
     Route: 065
  15. NASONEX [Concomitant]
     Active Substance: MOMETASONE FUROATE
     Indication: Product used for unknown indication
     Dosage: FORMULATION: SPRAY, METERED
     Route: 065
  16. NORVASC [Concomitant]
     Active Substance: AMLODIPINE BESYLATE
     Indication: Product used for unknown indication
     Dosage: 10 MILLIGRAM, 1 EVERY 1 DAYS
     Route: 065
  17. OLMESARTAN MEDOXOMIL [Concomitant]
     Active Substance: OLMESARTAN MEDOXOMIL
     Indication: Product used for unknown indication
     Dosage: UNK
     Route: 065
  18. PANTOPRAZOLE MAGNESIUM [Concomitant]
     Active Substance: PANTOPRAZOLE MAGNESIUM
     Indication: Product used for unknown indication
     Dosage: 40 MILLIGRAM, 1 EVERY 1 DAYS; FORMULATION: TABLET (ENTERIC-COATED)
     Route: 065

REACTIONS (21)
  - Blood cholesterol increased [Unknown]
  - Abdominal pain [Unknown]
  - Blood test abnormal [Recovering/Resolving]
  - Depression [Unknown]
  - Drug dependence [Unknown]
  - Drug ineffective [Unknown]
  - Obstruction [Unknown]
  - Peptic ulcer [Unknown]
  - Pulmonary function test decreased [Unknown]
  - Respiratory tract infection [Unknown]
  - Speech disorder [Recovering/Resolving]
  - Drug intolerance [Unknown]
  - Dysarthria [Unknown]
  - Eosinophil count abnormal [Unknown]
  - Loss of personal independence in daily activities [Unknown]
  - Therapeutic product effect incomplete [Unknown]
  - Asthma [Unknown]
  - Cough [Unknown]
  - Dyspnoea [Unknown]
  - Hypertension [Unknown]
  - Wheezing [Unknown]
